FAERS Safety Report 20333014 (Version 1)
Quarter: 2022Q1

REPORT INFORMATION
  Report Type: Spontaneous
  Country: FR (occurrence: FR)
  Receive Date: 20220113
  Receipt Date: 20220113
  Transmission Date: 20220423
  Serious: Yes (Other)
  Sender: FDA-Public Use
  Company Number: None

PATIENT
  Age: 63 Year
  Sex: Male
  Weight: 59 kg

DRUGS (3)
  1. PEMETREXED [Suspect]
     Active Substance: PEMETREXED
     Indication: Lung adenocarcinoma
     Dosage: 637.5 MG
     Route: 042
     Dates: start: 20210215
  2. CARBOPLATIN [Suspect]
     Active Substance: CARBOPLATIN
     Indication: Lung adenocarcinoma
     Dosage: 520 MG
     Route: 042
     Dates: start: 20210215
  3. KEYTRUDA [Suspect]
     Active Substance: PEMBROLIZUMAB
     Indication: Lung adenocarcinoma
     Dosage: 200 MG
     Route: 042
     Dates: start: 20210215

REACTIONS (2)
  - Neuropathy peripheral [Recovering/Resolving]
  - Hypophysitis [Recovering/Resolving]

NARRATIVE: CASE EVENT DATE: 20210308
